FAERS Safety Report 5423010-4 (Version None)
Quarter: 2007Q3

REPORT INFORMATION
  Report Type: 
  Country: None (occurrence: None)
  Receive Date: 20070822
  Receipt Date: 20070530
  Transmission Date: 20080115
  Serious: No
  Sender: FDA-Public Use
  Company Number: US-AMGEN-US226748

PATIENT
  Sex: Male

DRUGS (1)
  1. KEPIVANCE [Suspect]
     Indication: BONE MARROW TRANSPLANT

REACTIONS (1)
  - ACANTHOSIS NIGRICANS [None]
